FAERS Safety Report 12246803 (Version 1)
Quarter: 2016Q2

REPORT INFORMATION
  Report Type: Spontaneous
  Country: IT (occurrence: IT)
  Receive Date: 20160407
  Receipt Date: 20160407
  Transmission Date: 20160815
  Serious: Yes (Hospitalization)
  Sender: FDA-Public Use
  Company Number: IT-BAYER-2016-061711

PATIENT
  Age: 66 Year
  Sex: Male

DRUGS (2)
  1. CARDIOASPIRIN [Suspect]
     Active Substance: ASPIRIN
     Dosage: DAILY DOSE 100 MG
  2. TASIGNA [Suspect]
     Active Substance: NILOTINIB
     Indication: CHRONIC MYELOID LEUKAEMIA
     Dosage: DAILY DOSE 600 MG
     Dates: start: 20151125, end: 20151204

REACTIONS (1)
  - Atrial fibrillation [Recovering/Resolving]

NARRATIVE: CASE EVENT DATE: 20151205
